FAERS Safety Report 12301139 (Version 2)
Quarter: 2016Q3

REPORT INFORMATION
  Report Type: Spontaneous
  Country: US (occurrence: US)
  Receive Date: 20160425
  Receipt Date: 20160908
  Transmission Date: 20161109
  Serious: Yes (Other)
  Sender: FDA-Public Use
  Company Number: US-TEVA-653944USA

PATIENT
  Age: 53 Year
  Sex: Female

DRUGS (12)
  1. TRAMADOL. [Concomitant]
     Active Substance: TRAMADOL
  2. VITAMIN B12 [Concomitant]
     Active Substance: CYANOCOBALAMIN
  3. BOTOX [Concomitant]
     Active Substance: ONABOTULINUMTOXINA
  4. AMITRIPTYLINE [Concomitant]
     Active Substance: AMITRIPTYLINE
  5. CELEBREX [Concomitant]
     Active Substance: CELECOXIB
  6. IMITREX [Concomitant]
     Active Substance: SUMATRIPTAN SUCCINATE
  7. VITAMIN D [Concomitant]
     Active Substance: CHOLECALCIFEROL
  8. ZECUITY [Suspect]
     Active Substance: SUMATRIPTAN SUCCINATE
     Indication: HEADACHE
     Route: 062
     Dates: start: 20160417
  9. PRAMIPEXOLE. [Concomitant]
     Active Substance: PRAMIPEXOLE
  10. LYRICA [Concomitant]
     Active Substance: PREGABALIN
  11. DIOVAN [Concomitant]
     Active Substance: VALSARTAN
  12. ESCITALOPRAM [Concomitant]
     Active Substance: ESCITALOPRAM OXALATE

REACTIONS (17)
  - Application site discolouration [Not Recovered/Not Resolved]
  - Application site discomfort [Not Recovered/Not Resolved]
  - Application site scar [Not Recovered/Not Resolved]
  - Application site erythema [Not Recovered/Not Resolved]
  - Application site pruritus [Not Recovered/Not Resolved]
  - Application site vesicles [Not Recovered/Not Resolved]
  - Drug effect incomplete [Unknown]
  - Application site papules [Not Recovered/Not Resolved]
  - Application site burn [Not Recovered/Not Resolved]
  - Product leakage [Unknown]
  - Application site warmth [Not Recovered/Not Resolved]
  - Application site exfoliation [Not Recovered/Not Resolved]
  - Application site pain [Not Recovered/Not Resolved]
  - Application site paraesthesia [Not Recovered/Not Resolved]
  - Application site irritation [Not Recovered/Not Resolved]
  - Administration site erosion [Not Recovered/Not Resolved]
  - Product adhesion issue [Unknown]

NARRATIVE: CASE EVENT DATE: 20160417
